FAERS Safety Report 5589415-6 (Version None)
Quarter: 2008Q1

REPORT INFORMATION
  Report Type: 
  Country: None (occurrence: None)
  Receive Date: 20080109
  Receipt Date: 20080109
  Transmission Date: 20080703
  Serious: No
  Sender: FDA-Public Use
  Company Number: None

PATIENT
  Age: 59 Year
  Sex: Male
  Weight: 94.8018 kg

DRUGS (1)
  1. CIPROFLOXIN    500MG -TAB   RANBAXY -GENERIC- [Suspect]
     Indication: ANTIBIOTIC PROPHYLAXIS
     Dosage: 30 TABLETS  1 DAILY  PO
     Route: 048
     Dates: start: 20071223, end: 20071231

REACTIONS (3)
  - GAIT DISTURBANCE [None]
  - IMPAIRED WORK ABILITY [None]
  - SENSORY DISTURBANCE [None]
